FAERS Safety Report 26052391 (Version 1)
Quarter: 2025Q4

REPORT INFORMATION
  Report Type: Spontaneous
  Country: US (occurrence: US)
  Receive Date: 20251117
  Receipt Date: 20251117
  Transmission Date: 20260117
  Serious: No
  Sender: ALVOGEN
  Company Number: US-ALVOGEN-2025097973

PATIENT
  Sex: Female

DRUGS (3)
  1. TERIPARATIDE [Suspect]
     Active Substance: TERIPARATIDE
     Indication: Osteoporosis
     Dosage: EXPIRATION DATE: OCT-2025?LAST REFILL DATE: 18-APR-2025?(620MCG/2.48ML 1CT)
  2. TERIPARATIDE [Suspect]
     Active Substance: TERIPARATIDE
     Indication: Osteoporosis
     Dosage: REPLACED PEN; EXPIRATION DATE: OCT-2025?(620MCG/2.48ML 1CT)
     Dates: start: 20250513
  3. TERIPARATIDE [Suspect]
     Active Substance: TERIPARATIDE
     Indication: Osteoporosis
     Dosage: EXPIRATION DATE: AUG-2026?SN: 09112933645?STRENGTH: 250 UG/ML?GTIN: 00347781652890?250 UG/ML

REACTIONS (6)
  - Device malfunction [Unknown]
  - Device issue [Unknown]
  - Needle issue [Unknown]
  - Wrong technique in product usage process [Unknown]
  - Device defective [Unknown]
  - No adverse event [Unknown]

NARRATIVE: CASE EVENT DATE: 20250501
